FAERS Safety Report 5119117-1 (Version None)
Quarter: 2006Q3

REPORT INFORMATION
  Report Type: 
  Country: None (occurrence: None)
  Receive Date: 20060925
  Receipt Date: 20060919
  Transmission Date: 20061208
  Serious: Yes (Hospitalization)
  Sender: FDA-Public Use
  Company Number: HQWYE866319SEP06

PATIENT
  Age: 62 Year
  Sex: Male

DRUGS (10)
  1. CEFIXIME CHEWABLE [Suspect]
     Dosage: 200MG DAILY ORAL
     Route: 048
     Dates: start: 20060724, end: 20060810
  2. CIPROFLOXACIN HCL [Suspect]
     Indication: URINARY TRACT INFECTION
     Dosage: 250MG DAILY ORAL
     Route: 048
     Dates: start: 20060721, end: 20060724
  3. CLAMOXIL (AMOXICILLIN TRIHYDRATE) [Suspect]
     Dosage: 1G DAILY ORAL
     Route: 048
     Dates: start: 20060725, end: 20060810
  4. ACETAMINOPHEN W/ PROPOXYPHENE HCL [Suspect]
     Dosage: ORAL
     Route: 048
     Dates: start: 20060723, end: 20060731
  5. GENTAMICIN SULFATE [Concomitant]
  6. CEFPODOXIME PROXETIL [Concomitant]
  7. IMMUNE GLOBULIN INTRAVENOUS (HUMAN) [Concomitant]
  8. PREDNISONE TAB [Concomitant]
  9. LIORESAL [Concomitant]
  10. DEXTROSE (GLUCOSE INJECTION) [Concomitant]

REACTIONS (3)
  - CONDITION AGGRAVATED [None]
  - THROMBOCYTOPENIA [None]
  - THROMBOCYTOPENIC PURPURA [None]
